FAERS Safety Report 8836942 (Version 1)
Quarter: 2012Q4

REPORT INFORMATION
  Report Type: 
  Country: US (occurrence: US)
  Receive Date: 20121012
  Receipt Date: 20121012
  Transmission Date: 20130627
  Serious: Yes (Other)
  Sender: FDA-Public Use
  Company Number: US-PFIZER INC-2012252451

PATIENT
  Sex: Male

DRUGS (2)
  1. GEODON [Suspect]
     Dosage: UNK
  2. VIIBRYD [Suspect]
     Dosage: UNK

REACTIONS (2)
  - Palpitations [Recovered/Resolved]
  - Electrocardiogram change [Recovered/Resolved]
